FAERS Safety Report 8845664 (Version 1)
Quarter: 2012Q4

REPORT INFORMATION
  Report Type: 
  Country: US (occurrence: US)
  Receive Date: 20121017
  Receipt Date: 20121017
  Transmission Date: 20130627
  Serious: Yes (Hospitalization)
  Sender: FDA-Public Use
  Company Number: US-ROCHE-1139316

PATIENT
  Sex: Male

DRUGS (9)
  1. NUTROPIN AQ [Suspect]
     Indication: HYPOPITUITARISM
     Route: 065
  2. REZULIN [Concomitant]
     Route: 065
  3. REZULIN [Concomitant]
     Route: 048
  4. LEVOXYL [Concomitant]
     Route: 065
  5. CORTEF [Concomitant]
     Route: 065
  6. CORTEF [Concomitant]
     Route: 065
  7. DDAVP [Concomitant]
     Route: 045
  8. DEXEDRINE [Concomitant]
     Route: 065
  9. CPAP [Concomitant]
     Route: 065

REACTIONS (8)
  - Insulin resistance [Unknown]
  - Herpes pharyngitis [Unknown]
  - Dehydration [Unknown]
  - Obstructive airways disorder [Unknown]
  - Acanthosis nigricans [Unknown]
  - Type 2 diabetes mellitus [Unknown]
  - Obesity [Unknown]
  - Sleep apnoea syndrome [Unknown]
